FAERS Safety Report 9185959 (Version 2)
Quarter: 2013Q2

REPORT INFORMATION
  Report Type: Report from Study
  Country: US (occurrence: US)
  Receive Date: 20130325
  Receipt Date: 20130412
  Transmission Date: 20140414
  Serious: No
  Sender: FDA-Public Use
  Company Number: US-TEVA-392099USA

PATIENT
  Age: 42 Year
  Sex: Male
  Weight: 72.2 kg

DRUGS (8)
  1. TREANDA [Suspect]
     Indication: CHRONIC LYMPHOCYTIC LEUKAEMIA
     Route: 042
     Dates: start: 20120217
  2. TREANDA [Suspect]
     Route: 042
     Dates: start: 20120218
  3. OBINUTUZUMAB [Suspect]
     Indication: CHRONIC LYMPHOCYTIC LEUKAEMIA
     Dosage: INFUSION RATE OF 62.5 ML PER HOUR
     Route: 042
     Dates: start: 20120216
  4. OBINUTUZUMAB [Suspect]
     Route: 042
     Dates: start: 20120217
  5. ACICLOVIR [Concomitant]
     Indication: PROPHYLAXIS
     Route: 048
  6. BACTRIM [Concomitant]
     Indication: PROPHYLAXIS
     Route: 048
  7. ALLOPURINOL [Concomitant]
     Indication: PROPHYLAXIS
     Route: 048
     Dates: start: 20120212
  8. ZOFRAN [Concomitant]
     Indication: NAUSEA
     Dates: start: 20120217, end: 20120217

REACTIONS (2)
  - Infusion related reaction [Recovered/Resolved]
  - Neutropenia [Recovered/Resolved]
